FAERS Safety Report 25295806 (Version 1)
Quarter: 2025Q2

REPORT INFORMATION
  Report Type: Spontaneous
  Country: US (occurrence: US)
  Receive Date: 20250511
  Receipt Date: 20250511
  Transmission Date: 20250717
  Serious: No
  Sender: SANOFI AVENTIS
  Company Number: US-SA-2025SA132797

PATIENT
  Age: 84 Year
  Sex: Female
  Weight: 62.27 kg

DRUGS (3)
  1. DUPIXENT [Suspect]
     Active Substance: DUPILUMAB
     Indication: Chronic rhinosinusitis with nasal polyps
     Dosage: 300 MG, QOW
     Route: 058
     Dates: start: 20250409
  2. PREDNISONE [Concomitant]
     Active Substance: PREDNISONE
  3. AMOXICILLIN [Concomitant]
     Active Substance: AMOXICILLIN

REACTIONS (2)
  - Swelling face [Unknown]
  - Sinusitis [Unknown]

NARRATIVE: CASE EVENT DATE: 20250101
